FAERS Safety Report 24170680 (Version 1)
Quarter: 2024Q3

REPORT INFORMATION
  Report Type: Spontaneous
  Country: US (occurrence: None)
  Receive Date: 20240802
  Receipt Date: 20240802
  Transmission Date: 20241017
  Serious: Yes (Other)
  Sender: Public
  Company Number: None

PATIENT
  Age: 58 Year
  Sex: Female

DRUGS (2)
  1. IBUPROFEN [Suspect]
     Active Substance: IBUPROFEN
     Dosage: 200 MG TWICE A DAY ORAL ?
     Route: 048
     Dates: start: 20240730, end: 20240731
  2. Doxycycline Hyclate IR [Concomitant]
     Dates: start: 20240507, end: 20240802

REACTIONS (1)
  - Abdominal discomfort [None]

NARRATIVE: CASE EVENT DATE: 20240731
